FAERS Safety Report 4376913-6 (Version None)
Quarter: 2004Q2

REPORT INFORMATION
  Report Type: 
  Country: None (occurrence: None)
  Receive Date: 20040608
  Receipt Date: 20040602
  Transmission Date: 20050107
  Serious: Yes (Death)
  Sender: FDA-Public Use
  Company Number: 200411853GDS

PATIENT
  Age: 79 Year
  Sex: Male
  Weight: 70 kg

DRUGS (1)
  1. AVELOX [Suspect]
     Indication: PNEUMONIA
     Dosage: 400 MG, TOTALY DAILY, INTRAVENOUS
     Route: 042
     Dates: start: 20040420, end: 20040428

REACTIONS (1)
  - CLOSTRIDIUM COLITIS [None]
